FAERS Safety Report 10456479 (Version 1)
Quarter: 2014Q3

REPORT INFORMATION
  Report Type: Spontaneous
  Country: BR (occurrence: BR)
  Receive Date: 20140916
  Receipt Date: 20140916
  Transmission Date: 20150326
  Serious: Yes (Other)
  Sender: FDA-Public Use
  Company Number: BR-BAYER-2014-136939

PATIENT
  Age: 58 Year
  Sex: Female

DRUGS (1)
  1. MAGNEVISTAN [Suspect]
     Active Substance: GADOPENTETATE DIMEGLUMINE
     Indication: NUCLEAR MAGNETIC RESONANCE IMAGING
     Dosage: UNK, ONCE
     Route: 042
     Dates: start: 20140903, end: 20140903

REACTIONS (10)
  - Sneezing [Recovered/Resolved with Sequelae]
  - Visual impairment [None]
  - Throat irritation [Recovered/Resolved with Sequelae]
  - Tachycardia [Recovered/Resolved with Sequelae]
  - Eye irritation [Recovered/Resolved with Sequelae]
  - Eye haemorrhage [Recovered/Resolved with Sequelae]
  - Eye oedema [Recovered/Resolved with Sequelae]
  - Rhinalgia [Recovered/Resolved with Sequelae]
  - Pruritus [Recovered/Resolved with Sequelae]
  - Urticaria [Recovered/Resolved with Sequelae]

NARRATIVE: CASE EVENT DATE: 20140903
